FAERS Safety Report 8159736-1 (Version None)
Quarter: 2012Q1

REPORT INFORMATION
  Report Type: 
  Country: None (occurrence: None)
  Receive Date: 20120223
  Receipt Date: 20120202
  Transmission Date: 20120608
  Serious: Yes (Hospitalization, Other)
  Sender: FDA-Public Use
  Company Number: US-BAYER-2011-116296

PATIENT
  Age: 35 Year
  Sex: Female

DRUGS (7)
  1. YASMIN [Suspect]
     Indication: OVARIAN CYST
  2. NEXIUM [Concomitant]
     Indication: ABDOMINAL PAIN
  3. DROSPIRENONE AND ETHINYL ESTRADIOL [Suspect]
     Indication: CONTRACEPTION
     Dosage: UNK
     Dates: start: 20050101, end: 20080901
  4. YASMIN [Suspect]
     Indication: CONTRACEPTION
     Dosage: UNK
     Dates: start: 20050101, end: 20080901
  5. DROSPIRENONE AND ETHINYL ESTRADIOL [Suspect]
     Indication: OVARIAN CYST
  6. CIPROFLOXACIN [Concomitant]
     Dosage: 500 MG, BID (TWICE DAILY)
  7. ACIPHEX [Concomitant]
     Indication: ABDOMINAL PAIN

REACTIONS (2)
  - ABDOMINAL PAIN [None]
  - CHOLECYSTITIS CHRONIC [None]
